FAERS Safety Report 9254822 (Version 1)
Quarter: 2013Q2

REPORT INFORMATION
  Report Type: Spontaneous
  Country: US (occurrence: US)
  Receive Date: 20130425
  Receipt Date: 20130425
  Transmission Date: 20140414
  Serious: Yes (Life-Threatening, Hospitalization)
  Sender: FDA-Public Use
  Company Number: US-SHIONOGI, INC-2013000172

PATIENT
  Age: 15 Year
  Sex: Male

DRUGS (2)
  1. KAPVAY [Suspect]
     Indication: ATTENTION DEFICIT/HYPERACTIVITY DISORDER
     Dosage: 0.1 MG, QD
     Dates: start: 201304, end: 201304
  2. KLONOPIN [Concomitant]
     Indication: PRODUCT USED FOR UNKNOWN INDICATION
     Dosage: 0.1 MG, EVERY NIGHT
     Route: 065
     Dates: end: 201304

REACTIONS (1)
  - Suicide attempt [Unknown]
